FAERS Safety Report 9161193 (Version 3)
Quarter: 2013Q3

REPORT INFORMATION
  Report Type: Spontaneous
  Country: DE (occurrence: DE)
  Receive Date: 20130313
  Receipt Date: 20130926
  Transmission Date: 20140515
  Serious: Yes (Life-Threatening, Other)
  Sender: FDA-Public Use
  Company Number: DE-009507513-1303DEU004563

PATIENT
  Age: 49 Year
  Sex: Female
  Weight: 60 kg

DRUGS (4)
  1. SYCREST [Suspect]
     Indication: MANIA
     Dosage: 10 MG, QD
     Route: 048
     Dates: end: 20130306
  2. SYCREST [Suspect]
     Indication: BIPOLAR I DISORDER
  3. ZOPICLONE [Suspect]
     Indication: SLEEP DISORDER
     Dosage: UNK
     Route: 048
  4. QUILONUM (LITHIUM ACETATE) [Concomitant]
     Indication: BIPOLAR DISORDER
     Dosage: 3 UNIT DOSE, QD
     Route: 048
     Dates: end: 20130225

REACTIONS (6)
  - Oropharyngeal spasm [Recovered/Resolved]
  - Tongue spasm [Recovered/Resolved]
  - Extrapyramidal disorder [Recovered/Resolved]
  - Dysarthria [Recovered/Resolved]
  - Muscle spasms [Recovered/Resolved]
  - Muscle spasms [Recovered/Resolved]
